FAERS Safety Report 19602970 (Version 1)
Quarter: 2021Q3

REPORT INFORMATION
  Report Type: Spontaneous
  Country: ES (occurrence: GB)
  Receive Date: 20210723
  Receipt Date: 20210723
  Transmission Date: 20211014
  Serious: Yes (Death, Hospitalization, Other)
  Sender: FDA-Public Use
  Company Number: GB-BRECKENRIDGE PHARMACEUTICAL, INC.-2114207

PATIENT
  Age: 67 Year
  Sex: Male

DRUGS (6)
  1. OMEPRAZOLE. [Suspect]
     Active Substance: OMEPRAZOLE
     Dates: start: 20210626
  2. OXYCODONE. [Concomitant]
     Active Substance: OXYCODONE HYDROCHLORIDE
  3. MIDODRINE HYDROCHLORIDE. [Concomitant]
     Active Substance: MIDODRINE HYDROCHLORIDE
  4. TRAMADOL. [Concomitant]
     Active Substance: TRAMADOL
  5. OCTREOTIDE. [Suspect]
     Active Substance: OCTREOTIDE
  6. DEXAMETHASONE. [Concomitant]
     Active Substance: DEXAMETHASONE

REACTIONS (14)
  - Bell^s palsy [Fatal]
  - Blood pressure systolic decreased [Fatal]
  - Blood pressure diastolic increased [Fatal]
  - Fall [Fatal]
  - Seizure [Fatal]
  - Feeling abnormal [Fatal]
  - Inappropriate schedule of product administration [Fatal]
  - Flushing [Fatal]
  - Renal disorder [Fatal]
  - Erythema [Fatal]
  - Loss of consciousness [Fatal]
  - Cerebrovascular accident [Fatal]
  - Dysarthria [Fatal]
  - Arthralgia [Fatal]
